FAERS Safety Report 19615135 (Version 1)
Quarter: 2021Q3

REPORT INFORMATION
  Report Type: Spontaneous
  Country: US (occurrence: US)
  Receive Date: 20210727
  Receipt Date: 20210727
  Transmission Date: 20211014
  Serious: Yes (Hospitalization, Other)
  Sender: FDA-Public Use
  Company Number: US-ABBVIE-21K-163-4007180-00

PATIENT
  Age: 59 Year
  Sex: Female
  Weight: 127.12 kg

DRUGS (9)
  1. FENTANYL. [Concomitant]
     Active Substance: FENTANYL
     Dosage: EVERY OTHER DAY
  2. HUMIRA [Suspect]
     Active Substance: ADALIMUMAB
     Indication: CROHN^S DISEASE
     Route: 058
     Dates: start: 2010, end: 2013
  3. HUMIRA [Suspect]
     Active Substance: ADALIMUMAB
     Indication: CROHN^S DISEASE
     Route: 058
     Dates: start: 20161123, end: 201907
  4. FENTANYL. [Concomitant]
     Active Substance: FENTANYL
     Indication: PAIN
     Dosage: EVERY OTHER DAY
  5. MODERNA COVID?19 VACCINE [Concomitant]
     Active Substance: CX-024414
     Dosage: 042B21A, MODERNA
     Route: 030
     Dates: start: 20210419, end: 20210419
  6. CYCLOBENZAPRINE. [Concomitant]
     Active Substance: CYCLOBENZAPRINE
     Indication: RESTLESS LEGS SYNDROME
     Dosage: 2 AT BEDTIME
  7. ATORVASTATIN [Concomitant]
     Active Substance: ATORVASTATIN
     Indication: BLOOD CHOLESTEROL
     Dosage: 1 TIME PER DAY
  8. HUMIRA [Suspect]
     Active Substance: ADALIMUMAB
     Route: 058
     Dates: start: 201911
  9. MODERNA COVID?19 VACCINE [Concomitant]
     Active Substance: CX-024414
     Indication: COVID-19 IMMUNISATION
     Dosage: MODERNA, 008B21A
     Route: 030
     Dates: start: 20210322, end: 20210322

REACTIONS (17)
  - Pain in extremity [Not Recovered/Not Resolved]
  - Injection site pain [Recovering/Resolving]
  - Injection site urticaria [Recovering/Resolving]
  - Rheumatoid arthritis [Unknown]
  - Scab [Recovering/Resolving]
  - Fistula [Recovered/Resolved]
  - Pain in extremity [Not Recovered/Not Resolved]
  - Abdominal injury [Recovered/Resolved]
  - Injection site discolouration [Recovering/Resolving]
  - Injection site warmth [Recovering/Resolving]
  - Injection site warmth [Recovering/Resolving]
  - Dyspnoea [Not Recovered/Not Resolved]
  - Injection site bruising [Recovering/Resolving]
  - Fibromyalgia [Unknown]
  - Injection site bruising [Recovering/Resolving]
  - Injection site pain [Not Recovered/Not Resolved]
  - Hypersomnia [Not Recovered/Not Resolved]

NARRATIVE: CASE EVENT DATE: 2010
